FAERS Safety Report 11281856 (Version 1)
Quarter: 2015Q3

REPORT INFORMATION
  Report Type: Report from Study
  Country: BR (occurrence: BR)
  Receive Date: 20150717
  Receipt Date: 20150717
  Transmission Date: 20151125
  Serious: Yes (Other)
  Sender: FDA-Public Use
  Company Number: PHHY2014BR014281

PATIENT
  Sex: Female
  Weight: 70 kg

DRUGS (8)
  1. XOLAIR [Suspect]
     Active Substance: OMALIZUMAB
     Indication: ASTHMA
     Dosage: 2 DF, 2 AMPOULES (DOSE AND FREQUENCY UNSPECIFIED)/MONTH
     Route: 065
     Dates: start: 20121205, end: 201401
  2. ALENIA [Concomitant]
     Active Substance: BUDESONIDE\FORMOTEROL FUMARATE
     Indication: PRODUCT USED FOR UNKNOWN INDICATION
     Dosage: UNK, SINCE 8 YEARS AGO
  3. LOSARTAN. [Concomitant]
     Active Substance: LOSARTAN
     Indication: HYPERTENSION
     Dosage: UNK, SINCE 5 YEARS AGO
     Route: 065
  4. AMLODIPINE [Concomitant]
     Active Substance: AMLODIPINE BESYLATE
     Indication: HYPERTENSION
     Dosage: UNK, SINCE 5 YEARS AGO
     Route: 065
  5. PREDNISONE. [Concomitant]
     Active Substance: PREDNISONE
     Indication: FATIGUE
     Dosage: 10 DF, (10 TABLET OF EACH MEDICATIONS)
     Route: 065
  6. PREDNISONE. [Concomitant]
     Active Substance: PREDNISONE
     Indication: ASTHMA
  7. AMINOPHYLLINE SANDOZ [Suspect]
     Active Substance: AMINOPHYLLINE
     Indication: PRODUCT USED FOR UNKNOWN INDICATION
     Route: 065
  8. BUDESONIDE. [Concomitant]
     Active Substance: BUDESONIDE
     Indication: ASTHMA
     Dosage: UNK, SINCE 5 YEARS AGO
     Route: 065

REACTIONS (6)
  - Asthmatic crisis [Not Recovered/Not Resolved]
  - Hypertension [Unknown]
  - Fatigue [Unknown]
  - Nasopharyngitis [Unknown]
  - Cardiac disorder [Unknown]
  - Cardiac murmur [Unknown]
